FAERS Safety Report 24318160 (Version 1)
Quarter: 2024Q3

REPORT INFORMATION
  Report Type: Spontaneous
  Country: CA (occurrence: CA)
  Receive Date: 20240913
  Receipt Date: 20240913
  Transmission Date: 20241016
  Serious: Yes (Hospitalization, Other)
  Sender: SANDOZ
  Company Number: CA-AstraZeneca-2021A247674

PATIENT
  Age: 49 Year
  Sex: Female

DRUGS (89)
  1. CLONAZEPAM [Suspect]
     Active Substance: CLONAZEPAM
     Dosage: 0.5 MG
     Route: 048
  2. CLONAZEPAM [Suspect]
     Active Substance: CLONAZEPAM
     Indication: Anxiety
     Dosage: 0.5 MG
     Route: 065
  3. CLONAZEPAM [Suspect]
     Active Substance: CLONAZEPAM
     Dosage: 0.5 MG
     Route: 065
  4. CLONAZEPAM [Suspect]
     Active Substance: CLONAZEPAM
     Dosage: 0.5 MG
     Route: 065
  5. CLONAZEPAM [Suspect]
     Active Substance: CLONAZEPAM
     Dosage: 0.5 MG
     Route: 065
  6. CLONAZEPAM [Suspect]
     Active Substance: CLONAZEPAM
     Dosage: 0.5 MG
     Route: 065
  7. CLONAZEPAM [Suspect]
     Active Substance: CLONAZEPAM
     Dosage: 0.5 MG
     Route: 065
  8. CLONAZEPAM [Suspect]
     Active Substance: CLONAZEPAM
     Dosage: 0.5 MG
     Route: 065
  9. CLONAZEPAM [Suspect]
     Active Substance: CLONAZEPAM
     Dosage: 0.5 MG
     Route: 065
  10. CLONAZEPAM [Suspect]
     Active Substance: CLONAZEPAM
     Dosage: 0.5 MG
     Route: 065
  11. CLONAZEPAM [Suspect]
     Active Substance: CLONAZEPAM
     Dosage: 0.5 MG
     Route: 065
  12. CLONAZEPAM [Suspect]
     Active Substance: CLONAZEPAM
     Dosage: 0.5 MG
     Route: 065
  13. CLONAZEPAM [Suspect]
     Active Substance: CLONAZEPAM
     Dosage: 0.5 MG
     Route: 065
  14. CLONAZEPAM [Suspect]
     Active Substance: CLONAZEPAM
     Dosage: 0.5 MG
     Route: 065
  15. CLONAZEPAM [Suspect]
     Active Substance: CLONAZEPAM
     Dosage: 0.5 MG
     Route: 065
  16. CLONAZEPAM [Suspect]
     Active Substance: CLONAZEPAM
     Dosage: 0.5 MG
     Route: 065
  17. CLONAZEPAM [Suspect]
     Active Substance: CLONAZEPAM
     Dosage: 0.5 MG
     Route: 065
  18. CLONAZEPAM [Suspect]
     Active Substance: CLONAZEPAM
     Dosage: 0.5 MG
     Route: 065
  19. CLONAZEPAM [Suspect]
     Active Substance: CLONAZEPAM
     Indication: Depression
     Dosage: 1 MG
     Route: 065
  20. CLONAZEPAM [Suspect]
     Active Substance: CLONAZEPAM
     Dosage: 1 MG
     Route: 065
  21. CLONAZEPAM [Suspect]
     Active Substance: CLONAZEPAM
     Dosage: UNK
     Route: 065
  22. CLONAZEPAM [Suspect]
     Active Substance: CLONAZEPAM
     Dosage: UNK
     Route: 065
  23. CLONAZEPAM [Suspect]
     Active Substance: CLONAZEPAM
     Dosage: UNK
     Route: 065
  24. CLONAZEPAM [Suspect]
     Active Substance: CLONAZEPAM
     Dosage: UNK
     Route: 065
  25. DIAZEPAM [Suspect]
     Active Substance: DIAZEPAM
     Indication: Preoperative care
     Dosage: 10 MG
     Route: 065
  26. DIAZEPAM [Suspect]
     Active Substance: DIAZEPAM
     Dosage: 10 MG
     Route: 065
  27. FENTANYL [Suspect]
     Active Substance: FENTANYL\FENTANYL CITRATE
     Dosage: 13 DOSAGE FORM
     Route: 042
  28. FENTANYL [Suspect]
     Active Substance: FENTANYL\FENTANYL CITRATE
     Indication: Anaesthesia
     Dosage: 13 ?G/KG
     Route: 042
  29. FLUVOXAMINE MALEATE [Suspect]
     Active Substance: FLUVOXAMINE MALEATE
     Indication: Product used for unknown indication
     Dosage: UNK
     Route: 065
  30. MEPERIDINE HYDROCHLORIDE [Suspect]
     Active Substance: MEPERIDINE HYDROCHLORIDE
     Indication: Product used for unknown indication
     Dosage: UNK
     Route: 065
  31. MIDAZOLAM HYDROCHLORIDE [Suspect]
     Active Substance: MIDAZOLAM HYDROCHLORIDE
     Indication: Hypotension
     Dosage: 0.3 DOSAGE FORM
     Route: 065
  32. MIDAZOLAM HYDROCHLORIDE [Suspect]
     Active Substance: MIDAZOLAM HYDROCHLORIDE
     Indication: Anaesthesia
     Dosage: 0.3 ?G/KG
     Route: 065
  33. MIDAZOLAM HYDROCHLORIDE [Suspect]
     Active Substance: MIDAZOLAM HYDROCHLORIDE
     Dosage: UNKNOWN
     Route: 065
  34. METHYLENE BLUE [Suspect]
     Active Substance: METHYLENE BLUE
     Indication: Anaesthesia
     Dosage: 1.0 MG/KG
     Route: 065
  35. METHYLENE BLUE [Suspect]
     Active Substance: METHYLENE BLUE
     Indication: Hypotension
     Dosage: 1.0 MG/KG
     Route: 065
  36. PAROXETINE [Suspect]
     Active Substance: PAROXETINE
     Indication: Anxiety
     Dosage: 40 MG
     Route: 065
  37. PAROXETINE [Suspect]
     Active Substance: PAROXETINE
     Indication: Depression
     Dosage: 40 MG
     Route: 065
  38. PAROXETINE [Suspect]
     Active Substance: PAROXETINE
     Dosage: 40 MG
     Route: 065
  39. PAROXETINE [Suspect]
     Active Substance: PAROXETINE
     Dosage: 40 MG
     Route: 065
  40. PAROXETINE [Suspect]
     Active Substance: PAROXETINE
     Dosage: 40 MG
     Route: 065
  41. PAROXETINE [Suspect]
     Active Substance: PAROXETINE
     Dosage: 40 MG
     Route: 065
  42. PAROXETINE [Suspect]
     Active Substance: PAROXETINE
     Dosage: 40 MG
     Route: 065
  43. PAROXETINE [Suspect]
     Active Substance: PAROXETINE
     Dosage: 40 MG
     Route: 065
  44. PAROXETINE [Suspect]
     Active Substance: PAROXETINE
     Dosage: 40 MG
     Route: 065
  45. PAROXETINE [Suspect]
     Active Substance: PAROXETINE
     Dosage: 40 MG
     Route: 065
  46. PAROXETINE [Suspect]
     Active Substance: PAROXETINE
     Dosage: 40 MG
     Route: 065
  47. PAROXETINE [Suspect]
     Active Substance: PAROXETINE
     Dosage: 40 MG
     Route: 065
  48. PAROXETINE [Suspect]
     Active Substance: PAROXETINE
     Dosage: 40 MG
     Route: 065
  49. PAROXETINE [Suspect]
     Active Substance: PAROXETINE
     Dosage: 40 MG
     Route: 065
  50. PAROXETINE [Suspect]
     Active Substance: PAROXETINE
     Dosage: 40 MG
     Route: 065
  51. PAROXETINE [Suspect]
     Active Substance: PAROXETINE
     Dosage: 40 MG
     Route: 065
  52. PAROXETINE [Suspect]
     Active Substance: PAROXETINE
     Dosage: 40 MG
     Route: 065
  53. QUETIAPINE FUMARATE [Suspect]
     Active Substance: QUETIAPINE FUMARATE
     Indication: Depression
     Dosage: 25 MG, Q12H
     Route: 048
  54. QUETIAPINE FUMARATE [Suspect]
     Active Substance: QUETIAPINE FUMARATE
     Dosage: 25 MG, Q12H
     Route: 048
  55. QUETIAPINE FUMARATE [Suspect]
     Active Substance: QUETIAPINE FUMARATE
     Dosage: 25 MG, Q12H
     Route: 048
  56. QUETIAPINE FUMARATE [Suspect]
     Active Substance: QUETIAPINE FUMARATE
     Dosage: 25 MG, Q12H
     Route: 048
  57. QUETIAPINE FUMARATE [Suspect]
     Active Substance: QUETIAPINE FUMARATE
     Dosage: 25 MG, Q12H
     Route: 048
  58. QUETIAPINE FUMARATE [Suspect]
     Active Substance: QUETIAPINE FUMARATE
     Dosage: 25 MG, Q12H
     Route: 048
  59. QUETIAPINE FUMARATE [Suspect]
     Active Substance: QUETIAPINE FUMARATE
     Indication: Anxiety
     Dosage: 25 MG, BID
     Route: 048
  60. QUETIAPINE FUMARATE [Suspect]
     Active Substance: QUETIAPINE FUMARATE
     Indication: Hypotension
     Dosage: 25 MG, BID
     Route: 048
  61. QUETIAPINE FUMARATE [Suspect]
     Active Substance: QUETIAPINE FUMARATE
     Dosage: 25 MG, BID
     Route: 048
  62. QUETIAPINE FUMARATE [Suspect]
     Active Substance: QUETIAPINE FUMARATE
     Dosage: 50 MG, QD
     Route: 065
  63. QUETIAPINE FUMARATE [Suspect]
     Active Substance: QUETIAPINE FUMARATE
     Dosage: 50 MG, QD
     Route: 065
  64. QUETIAPINE FUMARATE [Suspect]
     Active Substance: QUETIAPINE FUMARATE
     Dosage: 50 MG, QD
     Route: 065
  65. QUETIAPINE FUMARATE [Suspect]
     Active Substance: QUETIAPINE FUMARATE
     Dosage: 50 MG, QD
     Route: 065
  66. QUETIAPINE FUMARATE [Suspect]
     Active Substance: QUETIAPINE FUMARATE
     Dosage: 50 MG, QD
     Route: 065
  67. QUETIAPINE FUMARATE [Suspect]
     Active Substance: QUETIAPINE FUMARATE
     Dosage: 50 MG, QD
     Route: 065
  68. QUETIAPINE FUMARATE [Suspect]
     Active Substance: QUETIAPINE FUMARATE
     Dosage: 50 MG, QD
     Route: 065
  69. QUETIAPINE FUMARATE [Suspect]
     Active Substance: QUETIAPINE FUMARATE
     Dosage: 50 MG, QD
     Route: 065
  70. QUETIAPINE FUMARATE [Suspect]
     Active Substance: QUETIAPINE FUMARATE
     Dosage: 50 MG, QD
     Route: 065
  71. QUETIAPINE FUMARATE [Suspect]
     Active Substance: QUETIAPINE FUMARATE
     Dosage: 50 MG, QD
     Route: 065
  72. QUETIAPINE FUMARATE [Suspect]
     Active Substance: QUETIAPINE FUMARATE
     Dosage: 50 MG, QD
     Route: 065
  73. QUETIAPINE FUMARATE [Suspect]
     Active Substance: QUETIAPINE FUMARATE
     Dosage: 50 MG, QD
     Route: 065
  74. QUETIAPINE FUMARATE [Suspect]
     Active Substance: QUETIAPINE FUMARATE
     Dosage: 50 MG, QD
     Route: 065
  75. QUETIAPINE FUMARATE [Suspect]
     Active Substance: QUETIAPINE FUMARATE
     Dosage: 50 MG, QD
     Route: 065
  76. QUETIAPINE FUMARATE [Suspect]
     Active Substance: QUETIAPINE FUMARATE
     Dosage: 50 MG, QD
     Route: 065
  77. QUETIAPINE FUMARATE [Suspect]
     Active Substance: QUETIAPINE FUMARATE
     Dosage: 50 MG, QD
     Route: 065
  78. QUETIAPINE FUMARATE [Suspect]
     Active Substance: QUETIAPINE FUMARATE
     Dosage: 50 MG, BID
     Route: 065
  79. QUETIAPINE FUMARATE [Suspect]
     Active Substance: QUETIAPINE FUMARATE
     Dosage: 50 MG, BID
     Route: 065
  80. QUETIAPINE FUMARATE [Suspect]
     Active Substance: QUETIAPINE FUMARATE
     Dosage: 50 MG, BID
     Route: 065
  81. SEVOFLURANE [Suspect]
     Active Substance: SEVOFLURANE
     Indication: Depression
     Dosage: UNK
     Route: 055
  82. SEVOFLURANE [Suspect]
     Active Substance: SEVOFLURANE
     Indication: Maintenance of anaesthesia
     Dosage: UNK
     Route: 055
  83. SEVOFLURANE [Suspect]
     Active Substance: SEVOFLURANE
     Indication: Anxiety
  84. DIPRIVAN [Interacting]
     Active Substance: ISOPROPYL ALCOHOL\PROPOFOL
     Indication: Induction of anaesthesia
     Dosage: 9.0 MG/KG
     Route: 065
  85. DIPRIVAN [Interacting]
     Active Substance: ISOPROPYL ALCOHOL\PROPOFOL
     Dosage: 9.0 MG/KG
     Route: 065
  86. NOREPINEPHRINE [Interacting]
     Active Substance: NOREPINEPHRINE\NOREPINEPHRINE BITARTRATE
     Indication: Hypotension
     Dosage: UNK
     Route: 065
  87. ROCURONIUM BROMIDE [Interacting]
     Active Substance: ROCURONIUM BROMIDE
     Indication: Depression
     Dosage: 1.0 MG/KG
     Route: 065
  88. ROCURONIUM BROMIDE [Interacting]
     Active Substance: ROCURONIUM BROMIDE
     Indication: Hypotonia
     Dosage: 1.0 MG/KG
     Route: 065
  89. ROCURONIUM BROMIDE [Interacting]
     Active Substance: ROCURONIUM BROMIDE
     Indication: Anxiety

REACTIONS (12)
  - Serotonin syndrome [Recovered/Resolved]
  - Toxic encephalopathy [Recovered/Resolved]
  - Alanine aminotransferase increased [Recovered/Resolved]
  - Amylase increased [Recovered/Resolved]
  - Blood creatine phosphokinase increased [Recovered/Resolved]
  - Blood lactate dehydrogenase increased [Recovered/Resolved]
  - Blood potassium increased [Recovered/Resolved]
  - Hypotension [Recovered/Resolved]
  - Myoglobin urine present [Recovered/Resolved]
  - Troponin increased [Recovered/Resolved]
  - Drug interaction [Recovered/Resolved]
  - Drug level below therapeutic [Recovered/Resolved]
